FAERS Safety Report 6511369-6 (Version None)
Quarter: 2009Q4

REPORT INFORMATION
  Report Type: 
  Country: None (occurrence: None)
  Receive Date: 20091222
  Receipt Date: 20090305
  Transmission Date: 20100525
  Serious: No
  Sender: FDA-Public Use
  Company Number: US-ASTRAZENECA-2009UW05928

PATIENT
  Age: 78 Year
  Sex: Female
  Weight: 113.4 kg

DRUGS (7)
  1. CRESTOR [Suspect]
     Indication: BLOOD CHOLESTEROL INCREASED
     Route: 048
  2. NORVASC [Concomitant]
  3. ATENOLOL [Concomitant]
  4. LASIX [Concomitant]
  5. PRILOSEC [Concomitant]
  6. BETAGAN [Concomitant]
     Route: 048
  7. ASPIRIN [Concomitant]

REACTIONS (1)
  - NIGHTMARE [None]
